FAERS Safety Report 10712189 (Version 4)
Quarter: 2015Q1

REPORT INFORMATION
  Report Type: Spontaneous
  Country: US (occurrence: US)
  Receive Date: 20150114
  Receipt Date: 20150316
  Transmission Date: 20150721
  Serious: Yes (Other)
  Sender: FDA-Public Use
  Company Number: US-AMGEN-USASP2015002031

PATIENT
  Age: 72 Year
  Sex: Female
  Weight: 53 kg

DRUGS (12)
  1. COREG [Concomitant]
     Active Substance: CARVEDILOL
     Indication: HYPERTENSION
     Dosage: 25 MG, 1 TABLET BY MOUTH TWICE A DAY
     Route: 048
  2. NEPHRO VITE RX [Concomitant]
     Active Substance: ASCORBIC ACID\BIOTIN\CALCIUM PANTOTHENATE\CYANOCOBALAMIN\FOLIC ACID\NIACINAMIDE\PYRIDOXINE HYDROCHLORIDE\RIBOFLAVIN\THIAMINE MONONITRATE
     Dosage: 0.8 MG, 1 TAB BY MOUTH EVERY DAY
     Route: 048
  3. CELEXA [Concomitant]
     Active Substance: CITALOPRAM HYDROBROMIDE
     Dosage: 20 MG, 1 TABLET ONCE DAILY
     Route: 048
  4. PHOSLO [Concomitant]
     Active Substance: CALCIUM ACETATE
     Dosage: 667 MG, THREE TIMES A DAY WITH MEAL. DOSE DECREASE
     Route: 048
  5. COMBIVENT RESPIMAT [Concomitant]
     Active Substance: ALBUTEROL SULFATE\IPRATROPIUM BROMIDE
     Dosage: 100 MCG/ACTUATION, INHALE 1 PUFF BY MOUTH EVERY SIX HOURS AS NEEDED
  6. COZAAR [Concomitant]
     Active Substance: LOSARTAN POTASSIUM
     Dosage: 25 MG, 1 TAB EVERY DAY
     Route: 048
  7. EPOGEN [Suspect]
     Active Substance: ERYTHROPOIETIN
     Indication: CHRONIC KIDNEY DISEASE
     Dosage: 10000 UNK, TIW
     Route: 058
     Dates: start: 201303, end: 20141231
  8. PRILOSEC [Concomitant]
     Active Substance: OMEPRAZOLE MAGNESIUM
     Dosage: 20 MG, QD
     Route: 048
  9. ZOCOR [Concomitant]
     Active Substance: SIMVASTATIN
     Indication: BLOOD CHOLESTEROL
     Dosage: 20 MG, 1 TABLET EVERY EVENING
     Route: 048
  10. TYLENOL [Concomitant]
     Active Substance: ACETAMINOPHEN
     Dosage: 325 MG, EVERY FOUR TO SIX HOURS AS NEEDED
     Route: 048
  11. VITAMIN D3 [Concomitant]
     Active Substance: CHOLECALCIFEROL
     Dosage: 1000 UNIT, 1 CAP BY MOUTH EVERY DAY
     Route: 048
  12. ADVAIR HFA [Concomitant]
     Active Substance: FLUTICASONE PROPIONATE\SALMETEROL XINAFOATE
     Dosage: 250-50 MCG/DOSE INHALE 1 PUFF, TWICE A DAY

REACTIONS (19)
  - Aortic valve replacement [Unknown]
  - Sepsis [Unknown]
  - Decreased appetite [Unknown]
  - Hypertension [Unknown]
  - Gastritis [Unknown]
  - Chronic obstructive pulmonary disease [Unknown]
  - Aplasia pure red cell [Not Recovered/Not Resolved]
  - Back pain [Unknown]
  - Weight decreased [Unknown]
  - Chronic gastrointestinal bleeding [Unknown]
  - Haematocrit decreased [Unknown]
  - Acute respiratory failure [Unknown]
  - Angiodysplasia [Unknown]
  - Anti-erythropoietin antibody positive [Unknown]
  - Therapeutic response decreased [Unknown]
  - Bone pain [Unknown]
  - Arthralgia [Unknown]
  - Oesophagitis [Unknown]
  - Thrombocytopenia [Unknown]

NARRATIVE: CASE EVENT DATE: 201304
